FAERS Safety Report 12159032 (Version 1)
Quarter: 2016Q1

REPORT INFORMATION
  Report Type: Spontaneous
  Country: US (occurrence: None)
  Receive Date: 20160307
  Receipt Date: 20160307
  Transmission Date: 20160526
  Serious: Yes (Disabling, Other)
  Sender: FDA-Public Use
  Company Number: None

PATIENT
  Age: 86 Year
  Sex: Male
  Weight: 58.06 kg

DRUGS (12)
  1. MEGESTROL AC MEGESTROL ACETATE SUSP. 40 MG MORTON GROVE PHARMACEUTICALS [Suspect]
     Active Substance: MEGESTROL ACETATE
     Indication: DECREASED APPETITE
     Dosage: 40 MG PT. TOOK 400 MG TO 800 MG 4TH DAY, TWICE DAILY, BY MOUTH
     Dates: start: 20151219, end: 20160202
  2. MIRALAX [Concomitant]
     Active Substance: POLYETHYLENE GLYCOL 3350
  3. MULTAQ [Concomitant]
     Active Substance: DRONEDARONE
  4. ASA [Concomitant]
     Active Substance: ASPIRIN
  5. OCUVITE [Concomitant]
     Active Substance: VITAMINS
  6. RESTORIL [Concomitant]
     Active Substance: TEMAZEPAM
  7. FLOMAX [Concomitant]
     Active Substance: TAMSULOSIN HYDROCHLORIDE
  8. PLAVIX [Concomitant]
     Active Substance: CLOPIDOGREL BISULFATE
  9. COSOPT [Concomitant]
     Active Substance: DORZOLAMIDE HYDROCHLORIDE\TIMOLOL MALEATE
  10. VIT. D [Concomitant]
  11. PRASORLIDE [Concomitant]
  12. ITANOPRIT [Concomitant]

REACTIONS (10)
  - Fall [None]
  - Insomnia [None]
  - Balance disorder [None]
  - Abasia [None]
  - Emotional disorder [None]
  - Depression [None]
  - Pollakiuria [None]
  - Mental impairment [None]
  - Illogical thinking [None]
  - Activities of daily living impaired [None]

NARRATIVE: CASE EVENT DATE: 20151219
